FAERS Safety Report 6411837-1 (Version None)
Quarter: 2009Q4

REPORT INFORMATION
  Report Type: 
  Country: None (occurrence: None)
  Receive Date: 20091023
  Receipt Date: 20091016
  Transmission Date: 20100525
  Serious: Yes (Other)
  Sender: FDA-Public Use
  Company Number: JP-BAYER-200913921BYL

PATIENT
  Age: 69 Year
  Sex: Female

DRUGS (12)
  1. NEXAVAR [Suspect]
     Indication: RENAL CELL CARCINOMA STAGE IV
     Dosage: UNIT DOSE: 200 MG
     Route: 048
     Dates: start: 20090709, end: 20090928
  2. FLUCAM [Concomitant]
     Dosage: UNIT DOSE: 13.5 MG
     Route: 048
     Dates: start: 20090706
  3. ULGUT [Concomitant]
     Dosage: UNIT DOSE: 200 MG
     Route: 048
     Dates: start: 20090706
  4. MAGLAX [Concomitant]
     Dosage: UNIT DOSE: 330 MG
     Route: 048
     Dates: start: 20090701
  5. OXYCONTIN [Concomitant]
     Dosage: UNIT DOSE: 5 MG
     Route: 048
     Dates: start: 20090710, end: 20090908
  6. MEPTIN AIR [Concomitant]
     Dosage: ARBITRARILY
     Route: 055
     Dates: start: 20090706
  7. ZOMETA [Concomitant]
     Dosage: TOTAL DAILY DOSE: 4 MG
     Route: 042
     Dates: start: 20090708, end: 20090805
  8. SOSEGON [Concomitant]
     Route: 042
     Dates: start: 20090706
  9. DECADRON [Concomitant]
     Dosage: TOTAL DAILY DOSE: 2 MG
     Route: 042
     Dates: start: 20090701, end: 20090706
  10. CEFAMEZIN [Concomitant]
     Dosage: TOTAL DAILY DOSE: 2 G
     Route: 042
     Dates: start: 20090717, end: 20090727
  11. PACETCOOL [Concomitant]
     Dosage: TOTAL DAILY DOSE: 2 G
     Route: 042
     Dates: start: 20090728, end: 20090730
  12. DUROTEP [Concomitant]
     Dosage: UNIT DOSE: 4.2 MG
     Route: 062
     Dates: start: 20090908

REACTIONS (3)
  - BONE MARROW FAILURE [None]
  - HEPATIC FUNCTION ABNORMAL [None]
  - HYPOPHOSPHATAEMIA [None]
